FAERS Safety Report 9928627 (Version 2)
Quarter: 2014Q1

REPORT INFORMATION
  Report Type: Spontaneous
  Country: US (occurrence: US)
  Receive Date: 20140227
  Receipt Date: 20140307
  Transmission Date: 20141002
  Serious: Yes (Other)
  Sender: FDA-Public Use
  Company Number: US-PFIZER INC-2014055580

PATIENT
  Age: 66 Year
  Sex: Male
  Weight: 90.7 kg

DRUGS (3)
  1. NICOTROL NASAL SPRAY [Suspect]
     Indication: SMOKING CESSATION THERAPY
     Dosage: UNK
  2. NICOTROL NASAL SPRAY [Suspect]
     Dosage: UNK,15X/DAY
     Dates: start: 20131028
  3. NICOTROL NASAL SPRAY [Suspect]
     Dosage: UNK, 2-3 TIMES A DAY

REACTIONS (3)
  - Hiatus hernia [Unknown]
  - Drug ineffective [Unknown]
  - Intentional drug misuse [Unknown]
